FAERS Safety Report 24813550 (Version 1)
Quarter: 2025Q1

REPORT INFORMATION
  Report Type: Report from Study
  Country: CN (occurrence: CN)
  Receive Date: 20250107
  Receipt Date: 20250107
  Transmission Date: 20250409
  Serious: Yes (Other)
  Sender: GILEAD
  Company Number: CN-GILEAD-2024-0695942

PATIENT
  Age: 39 Year
  Sex: Female

DRUGS (5)
  1. SACITUZUMAB GOVITECAN-HZIY [Suspect]
     Active Substance: SACITUZUMAB GOVITECAN-HZIY
     Indication: Invasive breast carcinoma
     Dosage: 360 MG, Q3WK [D1, D8/ EVERY 3 WEEKS (Q3W)]
     Route: 041
     Dates: start: 20241123
  2. SACITUZUMAB GOVITECAN-HZIY [Suspect]
     Active Substance: SACITUZUMAB GOVITECAN-HZIY
     Dosage: 540 MG, Q3WK
     Route: 041
     Dates: start: 20241219
  3. SACITUZUMAB GOVITECAN-HZIY [Suspect]
     Active Substance: SACITUZUMAB GOVITECAN-HZIY
     Dosage: 432 MG, Q3WK
     Route: 041
     Dates: start: 20241219
  4. RIVOCERANIB [Concomitant]
     Active Substance: RIVOCERANIB
     Indication: Invasive breast carcinoma
     Dosage: 0.25 MG, QD
     Route: 048
     Dates: start: 20241123
  5. RIVOCERANIB [Concomitant]
     Active Substance: RIVOCERANIB
     Dosage: 0.25 G, QD
     Dates: start: 20241219

REACTIONS (6)
  - Myelosuppression [Unknown]
  - Poor quality sleep [Unknown]
  - Decreased appetite [Recovering/Resolving]
  - Abdominal pain [Recovering/Resolving]
  - Vomiting [Recovering/Resolving]
  - Rash macular [Unknown]
